FAERS Safety Report 8928498 (Version 1)
Quarter: 2012Q4

REPORT INFORMATION
  Report Type: Spontaneous
  Country: PL (occurrence: None)
  Receive Date: 20121119
  Receipt Date: 20121119
  Transmission Date: 20130627
  Serious: Yes (Hospitalization)
  Sender: FDA-Public Use
  Company Number: PHEN20120011

PATIENT
  Age: 30 Year
  Sex: Female

DRUGS (2)
  1. PHENTERMINE HYDROCHLORIDE [Suspect]
     Indication: WEIGHT LOSS DIET
     Dosage: UNKNOWN, UNKNOWN, Oral
     Route: 048
  2. ANAGRELIDE [Suspect]
     Indication: THROMBOCYTOSIS
     Dosage: 2 mg, 4 in 1 D, Oral
     Route: 048

REACTIONS (1)
  - Stress cardiomyopathy [None]
